FAERS Safety Report 8888695 (Version 2)
Quarter: 2013Q3

REPORT INFORMATION
  Report Type: Spontaneous
  Country: US (occurrence: US)
  Receive Date: 20121106
  Receipt Date: 20130710
  Transmission Date: 20140515
  Serious: Yes (Hospitalization, Other)
  Sender: FDA-Public Use
  Company Number: US-PFIZER INC-2012274472

PATIENT
  Age: 64 Year
  Sex: Male

DRUGS (1)
  1. CHANTIX [Suspect]
     Dosage: 1 MG, 2X/DAY
     Dates: start: 20070501, end: 20090101

REACTIONS (3)
  - Convulsion [Unknown]
  - Hip fracture [Unknown]
  - Dizziness [Unknown]
